FAERS Safety Report 5317923-1 (Version None)
Quarter: 2007Q2

REPORT INFORMATION
  Report Type: 
  Country: None (occurrence: None)
  Receive Date: 20070507
  Receipt Date: 20070507
  Transmission Date: 20071010
  Serious: Yes (Other)
  Sender: FDA-Public Use
  Company Number: D0052502A

PATIENT
  Sex: Female

DRUGS (2)
  1. TURIXIN [Suspect]
     Route: 045
  2. ANTIBIOTICS [Concomitant]
     Route: 065

REACTIONS (1)
  - CONVULSION [None]
